FAERS Safety Report 5165257-0 (Version None)
Quarter: 2006Q4

REPORT INFORMATION
  Report Type: 
  Country: None (occurrence: None)
  Receive Date: 20061124
  Receipt Date: 20061113
  Transmission Date: 20070319
  Serious: Yes (Disabling)
  Sender: FDA-Public Use
  Company Number: 2006141376

PATIENT
  Age: 64 Year
  Sex: Male
  Weight: 73.3 kg

DRUGS (2)
  1. IRINOTECAN HCL [Suspect]
     Indication: COLON CANCER
     Dosage: 665 MG, INTRAVENOUS
     Route: 042
     Dates: start: 20061009, end: 20061009
  2. PREDNISOLONE [Concomitant]

REACTIONS (2)
  - ABDOMINAL PAIN UPPER [None]
  - MOVEMENT DISORDER [None]
